FAERS Safety Report 16610741 (Version 2)
Quarter: 2019Q3

REPORT INFORMATION
  Report Type: Spontaneous
  Country: DE (occurrence: DE)
  Receive Date: 20190722
  Receipt Date: 20190823
  Transmission Date: 20191004
  Serious: Yes (Death)
  Sender: FDA-Public Use
  Company Number: DE-JNJFOC-20190717015

PATIENT
  Age: 79 Year
  Sex: Male

DRUGS (7)
  1. NEBIVOLOL. [Concomitant]
     Active Substance: NEBIVOLOL
     Dosage: 5
  2. RAMIPRIL. [Concomitant]
     Active Substance: RAMIPRIL
     Dosage: 10
  3. TAMSULOSIN [Concomitant]
     Active Substance: TAMSULOSIN
     Dosage: 0.4
  4. ADENURIC [Concomitant]
     Active Substance: FEBUXOSTAT
  5. EFEROX [Concomitant]
     Active Substance: LEVOTHYROXINE SODIUM
     Dosage: 125
  6. TORASEMIDE [Concomitant]
     Active Substance: TORSEMIDE
     Dosage: 20
  7. RIVAROXABAN [Suspect]
     Active Substance: RIVAROXABAN
     Indication: ATRIAL FIBRILLATION
     Dosage: 15 MG, QD
     Route: 048

REACTIONS (3)
  - Pulmonary embolism [Fatal]
  - Circulatory collapse [Fatal]
  - Incorrect dose administered [Unknown]
